FAERS Safety Report 9844923 (Version 1)
Quarter: 2014Q1

REPORT INFORMATION
  Report Type: Spontaneous
  Country: US (occurrence: None)
  Receive Date: 20140122
  Receipt Date: 20140122
  Transmission Date: 20141002
  Serious: Yes (Death)
  Sender: FDA-Public Use
  Company Number: B0960256A

PATIENT
  Age: 25 Year
  Sex: Female

DRUGS (3)
  1. QUETIAPINE (GENERIC) (QUETIAPINE FUMARATE) [Suspect]
     Route: 048
  2. DIPHENHYDRAMINE (GENERIC) (DIPHENHYDRAMINE) [Suspect]
     Route: 048
  3. BUPROPION HYDROCHLORIDE (GENERIC) (BUPROPION HYDROCHLORIDE) [Suspect]
     Route: 048

REACTIONS (2)
  - Completed suicide [None]
  - Cardio-respiratory arrest [None]
